FAERS Safety Report 10866279 (Version 1)
Quarter: 2015Q1

REPORT INFORMATION
  Report Type: Spontaneous
  Country: IT (occurrence: None)
  Receive Date: 20150220
  Receipt Date: 20150220
  Transmission Date: 20150721
  Serious: Yes (Other)
  Sender: FDA-Public Use
  Company Number: 8012170

PATIENT
  Age: 47 Year
  Sex: Male

DRUGS (11)
  1. SIMVASTATIN (SIMVASTATIN) [Concomitant]
     Active Substance: SIMVASTATIN
  2. TACHIPIRINA (PARACETAMOL) [Concomitant]
  3. XANAX (ALPRAZOLAM [Concomitant]
  4. LUCEN [Suspect]
     Active Substance: ESOMEPRAZOLE
     Indication: PRODUCT USED FOR UNKNOWN INDICATION
  5. FLEXIBAN (CYCLOBENZAPRINE HYDROCHLORIDE) [Concomitant]
  6. OKI  (KETOPROFEN LYSINE) [Concomitant]
     Active Substance: KETOPROFEN LYSINE
  7. EUTIROX [Suspect]
     Active Substance: LEVOTHYROXINE SODIUM
     Indication: PRODUCT USED FOR UNKNOWN INDICATION
  8. SPASMOMEN (OTILONIUM BROMIDE) (40 MILLIGRAM) (OTILONIUM BROMIDE) [Suspect]
     Active Substance: OTILONIUM BROMIDE
     Indication: PRODUCT USED FOR UNKNOWN INDICATION
  9. CARDIOSPIRINA (ACETYLSALICYLIC ACID) (ACETYLSALICYTIC ACID) [Concomitant]
  10. CONTRAMAL (TRAMADOL HYDROCHLORIDE) [Concomitant]
  11. GUAIFENESIN W/PHENYLEPHRINE/PHENYLPROPRANOLAMI (DYNEX) (PHENYLEPHRINE, GUAIFENESIN, PHENYLPROPANOLAMINE HYDROCHLORIDE) [Concomitant]

REACTIONS (15)
  - Dyspepsia [None]
  - Hiatus hernia [None]
  - Duodenal neoplasm [None]
  - Oesophageal neoplasm [None]
  - Blood triglycerides increased [None]
  - Gastritis erosive [None]
  - Irritable bowel syndrome [None]
  - Palatal disorder [None]
  - Helicobacter test positive [None]
  - Gastrooesophageal reflux disease [None]
  - Gastric neoplasm [None]
  - Chest pain [None]
  - Fibromyalgia [None]
  - Intervertebral disc protrusion [None]
  - Colitis [None]

NARRATIVE: CASE EVENT DATE: 2004
